FAERS Safety Report 5797486-7 (Version None)
Quarter: 2008Q2

REPORT INFORMATION
  Report Type: 
  Country: None (occurrence: None)
  Receive Date: 20080630
  Receipt Date: 20080616
  Transmission Date: 20081010
  Serious: Yes (Hospitalization)
  Sender: FDA-Public Use
  Company Number: 2008AL007140

PATIENT
  Age: 76 Year
  Sex: Male
  Weight: 63.5036 kg

DRUGS (1)
  1. DIGOXIN [Suspect]
     Dosage: 0.25MG DAILY PO
     Route: 048
     Dates: start: 20071201, end: 20080401

REACTIONS (7)
  - ASTHENIA [None]
  - DIARRHOEA [None]
  - DIZZINESS [None]
  - HYPOTENSION [None]
  - LETHARGY [None]
  - NAUSEA [None]
  - WEIGHT DECREASED [None]
